FAERS Safety Report 8978976 (Version 1)
Quarter: 2012Q4

REPORT INFORMATION
  Report Type: Spontaneous
  Country: US (occurrence: None)
  Receive Date: 20121218
  Receipt Date: 20121218
  Transmission Date: 20130627
  Serious: Yes (Hospitalization)
  Sender: FDA-Public Use
  Company Number: None

PATIENT
  Age: 70 Year
  Sex: Male
  Weight: 115 kg

DRUGS (1)
  1. INSULIN [Suspect]
     Indication: IDDM
     Dates: start: 20111222, end: 20121212

REACTIONS (2)
  - Hypoglycaemia [None]
  - Blood glucose decreased [None]
